FAERS Safety Report 12114463 (Version 7)
Quarter: 2018Q3

REPORT INFORMATION
  Report Type: Spontaneous
  Country: BR (occurrence: BR)
  Receive Date: 20160225
  Receipt Date: 20180727
  Transmission Date: 20181010
  Serious: Yes (Hospitalization, Other)
  Sender: FDA-Public Use
  Company Number: BR-JNJFOC-20160217281

PATIENT
  Sex: Female
  Weight: 60 kg

DRUGS (18)
  1. OMEPRAZOLE. [Concomitant]
     Active Substance: OMEPRAZOLE
     Route: 065
  2. ZOLPIDEM [Concomitant]
     Active Substance: ZOLPIDEM\ZOLPIDEM TARTRATE
     Route: 065
  3. SIMPONI [Suspect]
     Active Substance: GOLIMUMAB
     Indication: RHEUMATOID ARTHRITIS
     Route: 058
     Dates: start: 20150402
  4. SIMPONI [Suspect]
     Active Substance: GOLIMUMAB
     Indication: RHEUMATOID ARTHRITIS
     Route: 058
  5. ATENOLOL. [Concomitant]
     Active Substance: ATENOLOL
     Route: 065
  6. CELEBRA [Concomitant]
     Active Substance: CELECOXIB
     Route: 065
  7. ALEKTOS [Concomitant]
     Active Substance: BILASTINE
     Route: 065
  8. SIMPONI [Suspect]
     Active Substance: GOLIMUMAB
     Indication: RHEUMATOID ARTHRITIS
     Route: 058
     Dates: start: 201601
  9. PREDNISONE. [Concomitant]
     Active Substance: PREDNISONE
     Route: 065
  10. HEXIDINE [Concomitant]
     Active Substance: CHLORHEXIDINE
     Route: 065
  11. CALCIUM [Concomitant]
     Active Substance: CALCIUM
     Route: 065
  12. SIMPONI [Suspect]
     Active Substance: GOLIMUMAB
     Indication: RHEUMATOID ARTHRITIS
     Route: 058
     Dates: start: 2016
  13. HYDROCHLOROTHIAZIDE. [Concomitant]
     Active Substance: HYDROCHLOROTHIAZIDE
     Route: 065
  14. LEFLUNOMIDE. [Concomitant]
     Active Substance: LEFLUNOMIDE
     Route: 065
  15. HIXIZINE [Concomitant]
     Active Substance: HYDROXYZINE HYDROCHLORIDE
     Route: 065
  16. ADDERA D3 [Concomitant]
     Active Substance: CHOLECALCIFEROL
     Route: 065
  17. IMIQUIMOD. [Concomitant]
     Active Substance: IMIQUIMOD
     Route: 065
  18. DOMPERIDONE [Suspect]
     Active Substance: DOMPERIDONE
     Indication: PRODUCT USED FOR UNKNOWN INDICATION
     Route: 065

REACTIONS (16)
  - Dysphonia [Unknown]
  - Dyspepsia [Unknown]
  - Skin discolouration [Unknown]
  - Device malfunction [Unknown]
  - Knee arthroplasty [Unknown]
  - Infection [Unknown]
  - Limb prosthesis user [Unknown]
  - Oropharyngeal pain [Unknown]
  - Dermatitis contact [Unknown]
  - Respiratory disorder [Unknown]
  - Arthralgia [Unknown]
  - Inflammation [Unknown]
  - Hypersensitivity [Not Recovered/Not Resolved]
  - Nodule [Unknown]
  - Rheumatoid factor increased [Unknown]
  - Peau d^orange [Unknown]

NARRATIVE: CASE EVENT DATE: 2016
